FAERS Safety Report 4358623-4 (Version None)
Quarter: 2004Q2

REPORT INFORMATION
  Report Type: 
  Country: None (occurrence: None)
  Receive Date: 20040512
  Receipt Date: 20040512
  Transmission Date: 20050107
  Serious: No
  Sender: FDA-Public Use
  Company Number: None

PATIENT
  Age: 50 Year
  Sex: Female
  Weight: 51 kg

DRUGS (1)
  1. AZTREONAM 1 GM IV Q 8 HR (BMS) [Suspect]
     Indication: NEPHROLITHIASIS
     Dosage: 1 GM IV Q 8 HR
     Route: 042
     Dates: start: 20040505, end: 20040511

REACTIONS (2)
  - RASH ERYTHEMATOUS [None]
  - RASH PRURITIC [None]
